FAERS Safety Report 23113390 (Version 2)
Quarter: 2024Q3

REPORT INFORMATION
  Report Type: Report from Study
  Country: CN (occurrence: CN)
  Receive Date: 20231027
  Receipt Date: 20240710
  Transmission Date: 20241017
  Serious: No
  Sender: ROCHE
  Company Number: CN-ROCHE-3395988

PATIENT
  Age: 32 Year
  Sex: Male
  Weight: 80.0 kg

DRUGS (1)
  1. ALECENSA [Suspect]
     Active Substance: ALECTINIB HYDROCHLORIDE
     Indication: Lung neoplasm malignant
     Dosage: 150 MG * 224 CAPSULES
     Route: 048
     Dates: start: 20220407

REACTIONS (1)
  - Tanning [Not Recovered/Not Resolved]

NARRATIVE: CASE EVENT DATE: 20230701
